FAERS Safety Report 13791289 (Version 5)
Quarter: 2020Q3

REPORT INFORMATION
  Report Type: Report from Study
  Country: RU (occurrence: RU)
  Receive Date: 20170725
  Receipt Date: 20180122
  Transmission Date: 20201105
  Serious: Yes (Death, Life-Threatening, Hospitalization)
  Sender: FDA-Public Use
  Company Number: RU-ASTRAZENECA-2017SE75633

PATIENT
  Age: 76 Year
  Sex: Male
  Weight: 60 kg

DRUGS (11)
  1. DESLORATADINE. [Concomitant]
     Active Substance: DESLORATADINE
     Indication: PRURIGO
     Route: 065
     Dates: start: 20170705, end: 20170713
  2. OMEPRAZOLE. [Concomitant]
     Active Substance: OMEPRAZOLE
     Indication: PROPHYLAXIS
     Route: 065
     Dates: start: 20170714
  3. MEDI4736 [Suspect]
     Active Substance: DURVALUMAB
     Indication: SQUAMOUS CELL CARCINOMA OF HEAD AND NECK
     Route: 042
     Dates: start: 20170608, end: 20170608
  4. EUTHYROX [Concomitant]
     Active Substance: LEVOTHYROXINE SODIUM
     Route: 065
     Dates: start: 2015
  5. SODIUM THIOSULFATE [Concomitant]
     Active Substance: SODIUM THIOSULFATE
     Indication: PRURIGO
     Route: 065
     Dates: start: 20170714, end: 20170721
  6. PRADAXA [Concomitant]
     Active Substance: DABIGATRAN ETEXILATE MESYLATE
     Indication: PROPHYLAXIS
     Route: 065
     Dates: start: 20170415, end: 20170516
  7. METHYLPREDNISOLONE. [Concomitant]
     Active Substance: METHYLPREDNISOLONE
     Indication: PRURIGO
     Route: 065
     Dates: start: 20170705, end: 20170721
  8. CLARITIN [Concomitant]
     Active Substance: LORATADINE
     Indication: PRURIGO
     Route: 065
     Dates: start: 20170714, end: 20170721
  9. PRADAXA [Concomitant]
     Active Substance: DABIGATRAN ETEXILATE MESYLATE
     Indication: PROPHYLAXIS
     Route: 065
     Dates: start: 20170704, end: 20170717
  10. TREMELIMUMAB. [Suspect]
     Active Substance: TREMELIMUMAB
     Indication: SQUAMOUS CELL CARCINOMA OF HEAD AND NECK
     Route: 042
     Dates: start: 20170608, end: 20170608
  11. CALCIUM GLUCONATE. [Concomitant]
     Active Substance: CALCIUM GLUCONATE
     Indication: PRURIGO
     Route: 065
     Dates: start: 20170705, end: 20170709

REACTIONS (2)
  - Thrombocytopenia [Not Recovered/Not Resolved]
  - Sudden cardiac death [Fatal]

NARRATIVE: CASE EVENT DATE: 20170721
